FAERS Safety Report 4508770-9 (Version None)
Quarter: 2004Q4

REPORT INFORMATION
  Report Type: 
  Country: None (occurrence: None)
  Receive Date: 20041123
  Receipt Date: 20040721
  Transmission Date: 20050328
  Serious: No
  Sender: FDA-Public Use
  Company Number: US-GLAXOSMITHKLINE-A0519230A

PATIENT
  Age: 72 Year
  Sex: Male

DRUGS (6)
  1. WELLBUTRIN [Suspect]
     Indication: DEPRESSION
     Dosage: 200MG TWICE PER DAY
     Route: 048
  2. ZOLOFT [Concomitant]
  3. PLAVIX [Concomitant]
  4. NITROGLYCERIN [Concomitant]
  5. TERAZOSIN HCL [Concomitant]
  6. XALATAN [Concomitant]

REACTIONS (2)
  - DIPLOPIA [None]
  - TREMOR [None]
